FAERS Safety Report 6944428-4 (Version None)
Quarter: 2010Q3

REPORT INFORMATION
  Report Type: 
  Country: None (occurrence: None)
  Receive Date: 20100827
  Receipt Date: 20100818
  Transmission Date: 20110219
  Serious: Yes (Other)
  Sender: FDA-Public Use
  Company Number: US-JNJFOC-20100805762

PATIENT
  Age: 40 Year
  Sex: Male
  Weight: 113.4 kg

DRUGS (3)
  1. ACETAMINOPHEN [Suspect]
     Indication: PAIN
     Route: 048
  2. ACETAMINOPHEN [Suspect]
     Indication: HEADACHE
     Route: 048
  3. 5 UNSPECIFIED MEDICATIONS [Concomitant]
     Indication: BIPOLAR DISORDER

REACTIONS (5)
  - ABDOMINAL PAIN [None]
  - ALOPECIA [None]
  - ERYTHEMA [None]
  - PRODUCT TAMPERING [None]
  - WEIGHT DECREASED [None]
